FAERS Safety Report 20256214 (Version 1)
Quarter: 2021Q4

REPORT INFORMATION
  Report Type: Spontaneous
  Country: US (occurrence: None)
  Receive Date: 20211230
  Receipt Date: 20211230
  Transmission Date: 20220303
  Serious: Yes (Other)
  Sender: FDA-Public Use
  Company Number: US-Hikma Pharmaceuticals USA Inc.-US-H14001-21-05451

PATIENT
  Sex: Female

DRUGS (2)
  1. PREDNISONE [Suspect]
     Active Substance: PREDNISONE
     Indication: Chronic graft versus host disease
     Dosage: UNKNOWN
     Route: 065
  2. JAKAFI [Suspect]
     Active Substance: RUXOLITINIB
     Indication: Chronic graft versus host disease
     Dosage: UNKNOWN
     Route: 065
     Dates: start: 202105

REACTIONS (28)
  - Osteopenia [Unknown]
  - Cataract [Unknown]
  - Visual impairment [Unknown]
  - Blister [Unknown]
  - Neuropathy peripheral [Unknown]
  - Glucose tolerance impaired [Unknown]
  - Daydreaming [Unknown]
  - Cognitive disorder [Unknown]
  - Confusional state [Unknown]
  - Immune system disorder [Unknown]
  - Gait disturbance [Unknown]
  - Fatigue [Unknown]
  - Skin discolouration [Recovering/Resolving]
  - Dermal cyst [Unknown]
  - Dry skin [Unknown]
  - Breast ulceration [Unknown]
  - Nail disorder [Unknown]
  - Sunscreen sensitivity [Unknown]
  - Sunburn [Unknown]
  - Vision blurred [Unknown]
  - Eye pruritus [Unknown]
  - Eye irritation [Unknown]
  - Sensitive skin [Unknown]
  - Mobility decreased [Recovering/Resolving]
  - Skin tightness [Unknown]
  - Nausea [Unknown]
  - Hair texture abnormal [Unknown]
  - Impaired driving ability [Unknown]
